FAERS Safety Report 8032412 (Version 3)
Quarter: 2013Q1

REPORT INFORMATION
  Report Type: Report from Study
  Country: IN (occurrence: IN)
  Receive Date: 20110713
  Receipt Date: 20130123
  Transmission Date: 20140127
  Serious: Yes (Hospitalization)
  Sender: FDA-Public Use
  Company Number: IN-BAYER-2011-056751

PATIENT
  Age: 35 Year
  Sex: Male
  Weight: 83.3 kg

DRUGS (35)
  1. MOXIFLOXACIN ORAL [Suspect]
     Indication: PULMONARY TUBERCULOSIS
     Dosage: 400 MG, UNK
     Dates: start: 20110623, end: 20110628
  2. RIFAMPICIN [Suspect]
     Indication: PULMONARY TUBERCULOSIS
     Dosage: DAILY DOSE 600 MG
     Route: 048
     Dates: start: 20110623, end: 20110628
  3. RIFAMPICIN [Suspect]
     Indication: PULMONARY TUBERCULOSIS
     Dosage: UNK
     Route: 048
     Dates: start: 20110629
  4. PYRAZINAMIDE [Suspect]
     Indication: PULMONARY TUBERCULOSIS
     Dosage: DAILY DOSE 2000 MG
     Route: 048
     Dates: start: 20110623, end: 20110628
  5. PYRAZINAMIDE [Suspect]
     Indication: PULMONARY TUBERCULOSIS
     Dosage: UNK
     Route: 048
     Dates: start: 20110629
  6. ISONIAZID [Suspect]
     Indication: PULMONARY TUBERCULOSIS
     Dosage: DAILY DOSE 300 MG
     Route: 048
     Dates: start: 20110623, end: 20110628
  7. ISONIAZID [Suspect]
     Indication: PULMONARY TUBERCULOSIS
     Dosage: UNK
     Route: 048
     Dates: start: 20110629
  8. PLACEBO [Suspect]
     Indication: PULMONARY TUBERCULOSIS
     Dosage: 1200MG
     Route: 048
     Dates: start: 20110623, end: 20110628
  9. THEOPHYLLINE [Suspect]
     Dosage: 6 DF, DAILY
     Dates: start: 20110602, end: 20110617
  10. THEOPHYLLINE [Suspect]
     Dosage: 10 ML, DAILY
     Dates: start: 20110620
  11. FAROPENEM [Concomitant]
     Dosage: DAILY DOSE 600 MG
     Route: 048
     Dates: start: 20110620, end: 20110623
  12. FAROPENEM [Concomitant]
     Dosage: DAILY DOSE 600 MG
     Route: 048
     Dates: start: 20110613, end: 20110617
  13. DEFCORT [Concomitant]
     Dosage: DAILY DOSE 7.5 MG
     Route: 048
     Dates: start: 20110620, end: 20110625
  14. DEFCORT [Concomitant]
     Dosage: DAILY DOSE 30 MG
     Route: 048
     Dates: start: 20110602, end: 20110617
  15. SALBUTAMOL [Concomitant]
     Indication: COUGH
     Route: 055
  16. BUDECORT [Concomitant]
     Indication: COUGH
     Route: 055
  17. BENADON [Concomitant]
     Indication: PULMONARY TUBERCULOSIS
     Dosage: DAILY DOSE 10 MG
     Route: 048
     Dates: start: 20110629
  18. BENADON [Concomitant]
     Indication: PULMONARY TUBERCULOSIS
     Dosage: 20 MG DAILY
     Route: 048
     Dates: start: 20110702
  19. STREPTOMYCIN [Concomitant]
     Indication: PULMONARY TUBERCULOSIS
     Dosage: UNK
     Route: 048
     Dates: start: 20110629
  20. STREPTOMYCIN [Concomitant]
     Indication: PULMONARY TUBERCULOSIS
     Dosage: UNK
     Route: 030
     Dates: start: 20110702
  21. PROBIOTICS [Concomitant]
     Indication: PULMONARY TUBERCULOSIS
     Dosage: UNK
     Route: 048
     Dates: start: 20110629
  22. PROBIOTICS [Concomitant]
     Indication: PULMONARY TUBERCULOSIS
     Dosage: UNK
     Dates: start: 20110702
  23. PANTOPRAZOLE [Concomitant]
     Dosage: 40 MG DAILY
     Dates: start: 20110613, end: 20110617
  24. PANTOPRAZOLE [Concomitant]
     Dosage: 40 MG DAILY
     Dates: start: 20110602, end: 20110607
  25. AZITHROMYCIN [Concomitant]
     Dosage: 500 MG DAILY
     Dates: start: 20110602, end: 20110605
  26. SOFA-2B (FDC) [Concomitant]
     Dosage: DAILY DOSE 1000 MG
     Dates: start: 20110607, end: 20110611
  27. SN-15 (FDC) [Concomitant]
     Dosage: UNK
     Dates: start: 20110607, end: 20110609
  28. PANTOPRAZOLE [Concomitant]
     Dosage: 40 MG DAILY
     Dates: start: 20110702
  29. POLYBION [Concomitant]
     Dosage: 4 TSP
     Route: 048
     Dates: start: 20110702
  30. PARACETAMOL [Concomitant]
     Dosage: 650 MG DAILY
     Route: 048
     Dates: start: 20110702
  31. CORDARONE [Concomitant]
     Dosage: 400 MG DAILY
     Route: 048
     Dates: start: 20110702
  32. ECOSPRIN [Concomitant]
     Dosage: 75 MG DAILY
     Route: 048
     Dates: start: 20110702
  33. RCINEX [Concomitant]
     Dosage: 600 MG DAILY
     Route: 048
     Dates: start: 20110702
  34. ETHAMBUTOL [Concomitant]
     Dosage: UNK
     Dates: start: 20110702
  35. PYRAZINAMID [Concomitant]
     Dosage: 2000 MG DAILY
     Route: 048
     Dates: start: 20110702

REACTIONS (1)
  - Atrial tachycardia [Recovered/Resolved]
